FAERS Safety Report 7145232-7 (Version None)
Quarter: 2010Q4

REPORT INFORMATION
  Report Type: 
  Country: None (occurrence: None)
  Receive Date: 20101208
  Receipt Date: 20101130
  Transmission Date: 20110411
  Serious: Yes (Hospitalization)
  Sender: FDA-Public Use
  Company Number: PHHY2010US81667

PATIENT
  Sex: Female

DRUGS (2)
  1. TOBI [Suspect]
     Indication: CYSTIC FIBROSIS
     Dosage: 300 MG, BID 28 DAYS ON AND 28 DAYS OFF
  2. TOBI [Suspect]
     Dosage: UNK
     Dates: start: 20101124

REACTIONS (2)
  - CATHETER SITE PAIN [None]
  - CHEST PAIN [None]
